FAERS Safety Report 6466935-3 (Version None)
Quarter: 2009Q4

REPORT INFORMATION
  Report Type: 
  Country: None (occurrence: None)
  Receive Date: 20091202
  Receipt Date: 20091102
  Transmission Date: 20100525
  Serious: No
  Sender: FDA-Public Use
  Company Number: US-JNJFOC-20091100947

PATIENT
  Sex: Male
  Weight: 94.35 kg

DRUGS (3)
  1. INVEGA [Suspect]
     Indication: SCHIZOPHRENIA
     Route: 048
  2. ABILIFY [Concomitant]
     Indication: SCHIZOPHRENIA
     Route: 048
  3. GEODON [Concomitant]
     Indication: SCHIZOPHRENIA
     Route: 048

REACTIONS (7)
  - ANXIETY [None]
  - CHEST PAIN [None]
  - CONFUSIONAL STATE [None]
  - HALLUCINATION, AUDITORY [None]
  - HEADACHE [None]
  - WEIGHT DECREASED [None]
  - WEIGHT INCREASED [None]
